FAERS Safety Report 18951842 (Version 2)
Quarter: 2021Q2

REPORT INFORMATION
  Report Type: Spontaneous
  Country: MX (occurrence: MX)
  Receive Date: 20210301
  Receipt Date: 20210405
  Transmission Date: 20210717
  Serious: No
  Sender: FDA-Public Use
  Company Number: MX-JNJFOC-20210228244

PATIENT
  Sex: Male

DRUGS (1)
  1. SIMPONI [Suspect]
     Active Substance: GOLIMUMAB
     Indication: RHEUMATOID ARTHRITIS
     Dosage: STRENGTH50.00 MG / 0.50 ML
     Route: 058

REACTIONS (4)
  - Drug delivery system malfunction [Unknown]
  - Needle issue [Unknown]
  - Product packaging issue [Unknown]
  - Treatment noncompliance [Unknown]
